FAERS Safety Report 4852549-5 (Version None)
Quarter: 2005Q4

REPORT INFORMATION
  Report Type: 
  Country: None (occurrence: None)
  Receive Date: 20051213
  Receipt Date: 20051206
  Transmission Date: 20060501
  Serious: Yes (Hospitalization)
  Sender: FDA-Public Use
  Company Number: PHRM2005FR03169

PATIENT
  Age: 61 Year
  Sex: Female
  Weight: 68 kg

DRUGS (13)
  1. TEGRETOL [Suspect]
     Indication: DYSTHYMIC DISORDER
     Dosage: 800 MG/DAY
     Route: 048
     Dates: start: 20051004, end: 20051007
  2. DEPAMIDE [Suspect]
     Indication: BIPOLAR I DISORDER
     Dosage: 1200 MG/DAY
     Route: 048
     Dates: start: 20030203
  3. PREVISCAN [Concomitant]
     Dosage: 20 MG/DAY
     Route: 048
     Dates: start: 20041126, end: 20051007
  4. NOCTAMID [Concomitant]
     Indication: SLEEP DISORDER
     Dosage: 2 MG/DAY
     Route: 048
     Dates: start: 20050826
  5. SULFARLEM S 25 [Concomitant]
     Indication: APTYALISM
     Dosage: 3 TAB/DAY
     Route: 048
     Dates: start: 20050826
  6. NEULEPTIL [Concomitant]
     Indication: PSYCHOTIC DISORDER
     Dosage: 75 MG/DAY
     Route: 048
     Dates: start: 20030721
  7. PARKINANE [Concomitant]
     Route: 048
  8. GLUCOPHAGE [Concomitant]
     Route: 048
  9. LEVOTHYROX [Concomitant]
  10. NITRODERM [Concomitant]
     Route: 062
  11. ZOCOR [Concomitant]
     Route: 048
  12. LANSOYL [Concomitant]
  13. TRANSIPEG [Concomitant]

REACTIONS (10)
  - COMA [None]
  - DRUG INTERACTION [None]
  - DRUG LEVEL INCREASED [None]
  - DYSTHYMIC DISORDER [None]
  - FACE INJURY [None]
  - FALL [None]
  - INTERNATIONAL NORMALISED RATIO INCREASED [None]
  - MOUTH INJURY [None]
  - OVERDOSE [None]
  - SOMNOLENCE [None]
